FAERS Safety Report 5670077-4 (Version None)
Quarter: 2008Q1

REPORT INFORMATION
  Report Type: 
  Country: None (occurrence: None)
  Receive Date: 20080312
  Receipt Date: 20080225
  Transmission Date: 20080703
  Serious: Yes (Death)
  Sender: FDA-Public Use
  Company Number: 2008000333

PATIENT
  Age: 57 Year
  Sex: Male

DRUGS (3)
  1. ERLOTINIB (ERLOTINIB) (TABLET) (ERLOTINIB) [Suspect]
     Indication: NON-SMALL CELL LUNG CANCER
     Dosage: 150 MG, QD; ORAL
     Route: 048
     Dates: start: 20080122, end: 20080202
  2. DICLOFENAC SODIUM [Concomitant]
  3. LYSINE ACETYLSALICYLATE [Concomitant]

REACTIONS (1)
  - RECTAL HAEMORRHAGE [None]
